FAERS Safety Report 18462815 (Version 1)
Quarter: 2020Q4

REPORT INFORMATION
  Report Type: Spontaneous
  Country: IT (occurrence: IT)
  Receive Date: 20201104
  Receipt Date: 20201104
  Transmission Date: 20210114
  Serious: Yes (Other)
  Sender: FDA-Public Use
  Company Number: IT-SAMSUNG BIOEPIS-SB-2020-33382

PATIENT
  Age: 26 Year
  Sex: Female

DRUGS (1)
  1. BENEPALI [Suspect]
     Active Substance: ETANERCEPT
     Indication: JUVENILE IDIOPATHIC ARTHRITIS
     Route: 058
     Dates: start: 20200101, end: 20200930

REACTIONS (4)
  - Arthralgia [Recovering/Resolving]
  - Drug ineffective [Recovering/Resolving]
  - Product substitution issue [Unknown]
  - Juvenile idiopathic arthritis [Recovering/Resolving]

NARRATIVE: CASE EVENT DATE: 20200401
